FAERS Safety Report 7079851-3 (Version None)
Quarter: 2010Q4

REPORT INFORMATION
  Report Type: 
  Country: None (occurrence: None)
  Receive Date: 20101102
  Receipt Date: 20101026
  Transmission Date: 20110411
  Serious: Yes (Other)
  Sender: FDA-Public Use
  Company Number: BR-SANOFI-AVENTIS-2010SA065713

PATIENT
  Sex: Male
  Weight: 55 kg

DRUGS (4)
  1. LANTUS [Suspect]
     Indication: TYPE 1 DIABETES MELLITUS
     Route: 058
     Dates: start: 20050101
  2. OPTIPEN [Suspect]
     Dates: start: 20050101
  3. OXYBUTYNIN [Concomitant]
     Indication: MICTURITION DISORDER
     Route: 048
  4. MULTI-VITAMINS [Concomitant]
     Route: 048
     Dates: start: 20100101

REACTIONS (3)
  - DEMENTIA ALZHEIMER'S TYPE [None]
  - HYPERGLYCAEMIA [None]
  - SOMNOLENCE [None]
